FAERS Safety Report 25647143 (Version 2)
Quarter: 2025Q3

REPORT INFORMATION
  Report Type: Spontaneous
  Country: US (occurrence: US)
  Receive Date: 20250806
  Receipt Date: 20250813
  Transmission Date: 20251020
  Serious: Yes (Hospitalization, Other)
  Sender: ACCORD
  Company Number: US-Accord-498426

PATIENT
  Age: 64 Year
  Sex: Male
  Weight: 89.2 kg

DRUGS (8)
  1. CARBOPLATIN [Suspect]
     Active Substance: CARBOPLATIN
     Indication: Small cell lung cancer extensive stage
     Dosage: Q3W, IV DRIP
     Route: 042
     Dates: start: 20250701, end: 20250701
  2. ETOPOSIDE [Suspect]
     Active Substance: ETOPOSIDE
     Indication: Small cell lung cancer extensive stage
     Dosage: Q3W, D1-3 OF EACH CYCLE; IV DRIP
     Route: 042
     Dates: start: 20250701, end: 20250703
  3. ATEZOLIZUMAB [Concomitant]
     Active Substance: ATEZOLIZUMAB
     Indication: Small cell lung cancer extensive stage
     Dosage: STRENGTH: 10 MILLIGRAM PER MILLILITER?Q3W; IV DRIP
     Route: 042
     Dates: start: 20250701, end: 20250701
  4. OXYCODONE [Concomitant]
     Active Substance: OXYCODONE
     Indication: Pain
     Route: 048
     Dates: start: 20250701
  5. SENOKOT-S [Concomitant]
     Active Substance: DOCUSATE SODIUM\SENNOSIDES
     Indication: Constipation
     Route: 048
     Dates: start: 20250709
  6. ELIQUIS [Concomitant]
     Active Substance: APIXABAN
     Indication: Atrial fibrillation
     Route: 048
     Dates: start: 2025
  7. TOPROL XL [Concomitant]
     Active Substance: METOPROLOL SUCCINATE
     Indication: Atrial fibrillation
     Route: 048
     Dates: start: 20250506
  8. LIPITOR [Concomitant]
     Active Substance: ATORVASTATIN CALCIUM
     Indication: Hyperlipidaemia
     Route: 048
     Dates: start: 2017

REACTIONS (2)
  - Pneumonia [Recovering/Resolving]
  - Tumour pain [Unknown]

NARRATIVE: CASE EVENT DATE: 20250717
